FAERS Safety Report 12514797 (Version 1)
Quarter: 2016Q2

REPORT INFORMATION
  Report Type: Spontaneous
  Country: US (occurrence: None)
  Receive Date: 20160629
  Receipt Date: 20160629
  Transmission Date: 20160815
  Serious: No
  Sender: FDA-Public Use
  Company Number: None

PATIENT
  Age: 72 Year
  Sex: Female

DRUGS (8)
  1. RISPERIDONE. [Suspect]
     Active Substance: RISPERIDONE
     Indication: DEMENTIA
     Dosage: 1 MG QHS ORAL
     Route: 048
     Dates: start: 20151105, end: 20151109
  2. RISPERIDONE. [Suspect]
     Active Substance: RISPERIDONE
     Indication: DEMENTIA ALZHEIMER^S TYPE
     Dosage: 1 MG QHS ORAL
     Route: 048
     Dates: start: 20151105, end: 20151109
  3. MEMANTINE. [Concomitant]
     Active Substance: MEMANTINE
  4. TRAZODONE 25MG [Concomitant]
  5. OMEPRAZOLE 40MG [Concomitant]
     Active Substance: OMEPRAZOLE
  6. AMLODIPINE 5MG [Concomitant]
  7. PAROXETINE 20MG [Concomitant]
     Active Substance: PAROXETINE
  8. L-THYROXINE 0.025MG [Concomitant]

REACTIONS (4)
  - Motor dysfunction [None]
  - Fall [None]
  - Therapy change [None]
  - Head injury [None]

NARRATIVE: CASE EVENT DATE: 20151110
